FAERS Safety Report 23936091 (Version 1)
Quarter: 2024Q2

REPORT INFORMATION
  Report Type: Spontaneous
  Country: CN (occurrence: CN)
  Receive Date: 20240604
  Receipt Date: 20240604
  Transmission Date: 20240715
  Serious: Yes (Other)
  Sender: FDA-Public Use
  Company Number: CN-SUN PHARMACEUTICAL INDUSTRIES LTD-2024R1-445633

PATIENT
  Age: 62 Year
  Sex: Male

DRUGS (3)
  1. LIDOCAINE [Suspect]
     Active Substance: LIDOCAINE
     Indication: Ventricular tachycardia
     Dosage: 100 MILLIGRAM
     Route: 065
  2. SODIUM CHLORIDE [Suspect]
     Active Substance: SODIUM CHLORIDE
     Indication: Prophylaxis
     Dosage: UNK
     Route: 042
  3. DOPAMINE [Suspect]
     Active Substance: DOPAMINE HYDROCHLORIDE
     Indication: Prophylaxis
     Dosage: UNK
     Route: 042

REACTIONS (3)
  - Drug ineffective [Unknown]
  - Blood pressure decreased [Recovering/Resolving]
  - Pyrexia [Unknown]
